FAERS Safety Report 8070461-8 (Version None)
Quarter: 2012Q1

REPORT INFORMATION
  Report Type: 
  Country: None (occurrence: None)
  Receive Date: 20120125
  Receipt Date: 20120117
  Transmission Date: 20120608
  Serious: Yes (Death, Hospitalization)
  Sender: FDA-Public Use
  Company Number: FR-ROCHE-1031357

PATIENT
  Sex: Female

DRUGS (4)
  1. MABTHERA [Suspect]
     Indication: CRYOGLOBULINAEMIA
     Route: 042
     Dates: start: 20060601
  2. MABTHERA [Suspect]
     Dates: start: 20110901, end: 20110929
  3. PREDNISONE TAB [Suspect]
     Indication: CRYOGLOBULINAEMIA
     Route: 048
     Dates: end: 20111025
  4. MABTHERA [Suspect]
     Dosage: 2 COURSES
     Dates: start: 20070118

REACTIONS (1)
  - CONGESTIVE CARDIOMYOPATHY [None]
